FAERS Safety Report 4736027-X (Version None)
Quarter: 2005Q3

REPORT INFORMATION
  Report Type: 
  Country: None (occurrence: None)
  Receive Date: 20050805
  Receipt Date: 20050428
  Transmission Date: 20060218
  Serious: Yes (Death, Hospitalization)
  Sender: FDA-Public Use
  Company Number: US-MERCK-0505USA00130

PATIENT
  Age: 64 Year
  Sex: Male
  Weight: 125 kg

DRUGS (8)
  1. VIOXX [Suspect]
     Indication: OSTEOARTHRITIS
     Route: 048
     Dates: start: 20020101, end: 20030415
  2. NORVASC [Concomitant]
     Indication: HYPERTENSION
     Route: 065
     Dates: end: 20031001
  3. AVAPRO [Concomitant]
     Indication: HYPERTENSION
     Route: 065
     Dates: end: 20031001
  4. LASIX [Concomitant]
     Indication: RENAL FAILURE CHRONIC
     Route: 065
     Dates: end: 20031001
  5. LASIX [Concomitant]
     Indication: OEDEMA
     Route: 065
     Dates: end: 20031001
  6. ROXICET [Concomitant]
     Indication: PAIN
     Route: 065
     Dates: end: 20031001
  7. SODIUM BICARBONATE [Concomitant]
     Route: 065
  8. ASPIRIN [Concomitant]
     Indication: PROPHYLAXIS
     Route: 065
     Dates: start: 20031001

REACTIONS (3)
  - CEREBROVASCULAR ACCIDENT [None]
  - DEATH [None]
  - OESOPHAGEAL DISORDER [None]
